FAERS Safety Report 22916409 (Version 3)
Quarter: 2023Q4

REPORT INFORMATION
  Report Type: Spontaneous
  Country: ES (occurrence: ES)
  Receive Date: 20230907
  Receipt Date: 20231002
  Transmission Date: 20240110
  Serious: Yes (Hospitalization, Other)
  Sender: FDA-Public Use
  Company Number: ES-AMGEN-ESPSP2023141368

PATIENT
  Age: 35 Year
  Sex: Female

DRUGS (4)
  1. ADALIMUMAB [Suspect]
     Active Substance: ADALIMUMAB
     Indication: Crohn^s disease
     Dosage: UNK,(DOSAGE1: UNIT=NOT AVAILABLE)
     Route: 065
     Dates: start: 2019
  2. TEDUGLUTIDE [Suspect]
     Active Substance: TEDUGLUTIDE
     Indication: Product used for unknown indication
     Dosage: 1 MILLIGRAM,QD,(1 MG/D (0.025 MG-KG-D-1))
     Route: 065
     Dates: start: 202103
  3. USTEKINUMAB [Suspect]
     Active Substance: USTEKINUMAB
     Indication: Crohn^s disease
     Dosage: UNK
     Route: 065
     Dates: start: 202001
  4. INFLIXIMAB [Concomitant]
     Active Substance: INFLIXIMAB
     Indication: Crohn^s disease
     Dosage: UNK
     Route: 065
     Dates: start: 2019

REACTIONS (6)
  - Renal amyloidosis [Unknown]
  - Chronic kidney disease [Unknown]
  - Enterocutaneous fistula [Unknown]
  - Post procedural complication [Unknown]
  - Malnutrition [Recovering/Resolving]
  - Treatment failure [Unknown]

NARRATIVE: CASE EVENT DATE: 20200101
